FAERS Safety Report 6153605-4 (Version None)
Quarter: 2009Q2

REPORT INFORMATION
  Report Type: 
  Country: None (occurrence: None)
  Receive Date: 20090413
  Receipt Date: 20090401
  Transmission Date: 20091009
  Serious: Yes (Disabling, Other)
  Sender: FDA-Public Use
  Company Number: BR-PFIZER INC-2007101610

PATIENT

DRUGS (4)
  1. CHAMPIX [Suspect]
     Indication: TOBACCO USER
     Route: 048
     Dates: start: 20071121, end: 20071125
  2. RIVOTRIL [Concomitant]
     Dosage: 0.5
     Route: 048
     Dates: start: 20010101
  3. TOFRANIL [Concomitant]
     Dosage: 50MG
     Route: 048
     Dates: start: 20010101
  4. PROPRANOLOL [Concomitant]
     Dosage: 40MG
     Route: 048
     Dates: start: 20010101

REACTIONS (4)
  - ABDOMINAL PAIN [None]
  - DIARRHOEA HAEMORRHAGIC [None]
  - HAEMATEMESIS [None]
  - INTESTINAL HAEMORRHAGE [None]
